FAERS Safety Report 17840259 (Version 2)
Quarter: 2021Q3

REPORT INFORMATION
  Report Type: Spontaneous
  Country: US (occurrence: US)
  Receive Date: 20200529
  Receipt Date: 20210802
  Transmission Date: 20211014
  Serious: Yes (Hospitalization, Other)
  Sender: FDA-Public Use
  Company Number: US-TEVA-2020-US-1241164

PATIENT
  Age: 74 Year
  Sex: Female
  Weight: 74.91 kg

DRUGS (14)
  1. VALSARTAN ACTAVIS [Suspect]
     Active Substance: VALSARTAN
     Indication: HYPERTENSION
     Dosage: 160 MILLIGRAM DAILY;
     Route: 048
     Dates: start: 20160816, end: 20160816
  2. VALSARTAN SOLCO [Suspect]
     Active Substance: VALSARTAN
     Indication: HYPERTENSION
     Dosage: 160 MILLIGRAM DAILY;
     Route: 048
     Dates: start: 20161010, end: 20170718
  3. ONDANSETRON [Concomitant]
     Active Substance: ONDANSETRON
     Indication: NAUSEA
     Dosage: 4 MILLIGRAM DAILY;
     Dates: start: 20180202
  4. VALSARTAN HCTZ PAR [Suspect]
     Active Substance: HYDROCHLOROTHIAZIDE\VALSARTAN
     Indication: HYPERTENSION
     Dosage: 1 DOSAGE FORMS DAILY; 160MG/12.5MG, IN ?2014 AND ?2015
     Route: 048
  5. OMEPRAZOLE. [Concomitant]
     Active Substance: OMEPRAZOLE
     Indication: GASTRIC ULCER
     Dosage: 40 MILLIGRAM DAILY;
     Dates: start: 201001
  6. VALSARTAN HCTZ MACLEODS [Suspect]
     Active Substance: HYDROCHLOROTHIAZIDE\VALSARTAN
     Indication: HYPERTENSION
     Dosage: 1 DOSAGE FORMS DAILY; 160MG/12.5MG, IN 2015 AND 2016
     Route: 048
  7. DIOVAN HCT [Suspect]
     Active Substance: HYDROCHLOROTHIAZIDE\VALSARTAN
     Indication: HYPERTENSION
     Dosage: 1 DOSAGE FORMS DAILY; 160MG/12.5MG, IN 2009, 2010, 2011, 2012
     Route: 048
  8. FERROUS SULFATE. [Concomitant]
     Active Substance: FERROUS SULFATE
     Indication: BLOOD IRON DECREASED
     Dosage: 325 MILLIGRAM DAILY;
     Dates: start: 201007
  9. VALSARTAN SOLCO [Suspect]
     Active Substance: VALSARTAN
     Dosage: 160 MILLIGRAM DAILY;
     Route: 048
     Dates: start: 20170725, end: 20171023
  10. ACETAMINOPHEN. [Concomitant]
     Active Substance: ACETAMINOPHEN
     Indication: PAIN
  11. VALSARTAN SOLCO [Suspect]
     Active Substance: VALSARTAN
     Route: 048
     Dates: start: 20171020, end: 20180120
  12. VITAMIN B12 [Concomitant]
     Active Substance: CYANOCOBALAMIN
     Indication: BLOOD IRON DECREASED
     Dosage: 5000 MILLIGRAM DAILY;
     Dates: start: 201012
  13. VALSARTAN HCTZ SANDOZ [Suspect]
     Active Substance: HYDROCHLOROTHIAZIDE\VALSARTAN
     Indication: HYPERTENSION
     Dosage: 1 DOSAGE FORMS DAILY; 160MG/12.5MG, IN 2012 AND 2014.
     Route: 048
  14. METFORMIN [Concomitant]
     Active Substance: METFORMIN HYDROCHLORIDE
     Indication: DIABETES MELLITUS
     Dosage: 2000 MILLIGRAM DAILY;
     Dates: start: 201502

REACTIONS (1)
  - Colon cancer stage II [Recovered/Resolved]
